FAERS Safety Report 6591083-1 (Version None)
Quarter: 2010Q1

REPORT INFORMATION
  Report Type: 
  Country: None (occurrence: None)
  Receive Date: 20100205
  Receipt Date: 20100121
  Transmission Date: 20100710
  Serious: Yes (Hospitalization)
  Sender: FDA-Public Use
  Company Number: 2009US000027

PATIENT
  Age: 65 Year
  Sex: Female

DRUGS (21)
  1. ENTEREG [Suspect]
     Indication: POSTOPERATIVE ILEUS
     Dosage: 12 MG;PO
     Route: 048
     Dates: start: 20090616, end: 20090621
  2. PRAVACHOL [Concomitant]
  3. METOPROLOL TARTRATE [Concomitant]
  4. OMEPRAZOLE [Concomitant]
  5. LISINOPRIL AND HYDROCHLOROTHIAZIDE [Concomitant]
  6. ASPIRIN [Concomitant]
  7. IMDUR [Concomitant]
  8. LEVOTHYROXINE [Concomitant]
  9. COUMADIN [Concomitant]
  10. INVANZ [Concomitant]
  11. LOVENOX [Concomitant]
  12. ISOSORBIDE [Concomitant]
  13. LISINOPRIL [Concomitant]
  14. SIMVASTATIN [Concomitant]
  15. MORPHINE [Concomitant]
  16. LOPRESSOR [Concomitant]
  17. LASIX [Concomitant]
  18. AMIODARONE HCL [Concomitant]
  19. PERCOCET [Concomitant]
  20. ZOFRAN [Concomitant]
  21. NEXIUM [Concomitant]

REACTIONS (3)
  - ATRIAL FIBRILLATION [None]
  - COLECTOMY [None]
  - POST PROCEDURAL MYOCARDIAL INFARCTION [None]
